FAERS Safety Report 8434272-3 (Version None)
Quarter: 2012Q2

REPORT INFORMATION
  Report Type: 
  Country: None (occurrence: None)
  Receive Date: 20120613
  Receipt Date: 20120604
  Transmission Date: 20120825
  Serious: Yes (Hospitalization)
  Sender: FDA-Public Use
  Company Number: US-ABBOTT-12P-163-0942576-00

PATIENT
  Age: 55 Year
  Sex: Male

DRUGS (8)
  1. PREDNISONE TAB [Concomitant]
     Indication: PRODUCT USED FOR UNKNOWN INDICATION
  2. UNKNOWN MEDICATIONS [Concomitant]
     Indication: PRODUCT USED FOR UNKNOWN INDICATION
  3. TEGRETOL [Concomitant]
     Indication: EPILEPSY
  4. HUMIRA [Suspect]
     Indication: RHEUMATOID ARTHRITIS
     Dates: start: 20110301, end: 20110701
  5. MYSLIN [Concomitant]
     Indication: EPILEPSY
  6. WATER PILL [Concomitant]
     Indication: PRODUCT USED FOR UNKNOWN INDICATION
  7. FUROSEMIDE [Concomitant]
     Indication: PRODUCT USED FOR UNKNOWN INDICATION
  8. DILANTIN [Concomitant]
     Indication: EPILEPSY

REACTIONS (4)
  - LOSS OF CONSCIOUSNESS [None]
  - HYPOKALAEMIA [None]
  - WEIGHT DECREASED [None]
  - HYPONATRAEMIA [None]
